FAERS Safety Report 5874240-9 (Version None)
Quarter: 2008Q3

REPORT INFORMATION
  Report Type: 
  Country: None (occurrence: None)
  Receive Date: 20080908
  Receipt Date: 20080715
  Transmission Date: 20090109
  Serious: Yes (Death, Other)
  Sender: FDA-Public Use
  Company Number: US-PURDUE-USA_2008_0034508

PATIENT
  Sex: Male

DRUGS (1)
  1. OXYCONTIN [Suspect]
     Indication: PAIN
     Dosage: UNK MG, UNK
     Route: 048
     Dates: start: 19950101

REACTIONS (6)
  - ANGINA PECTORIS [None]
  - DEATH [None]
  - DRUG ABUSE [None]
  - DRUG DEPENDENCE [None]
  - FALL [None]
  - JOINT INJURY [None]
